FAERS Safety Report 7248393-4 (Version None)
Quarter: 2011Q1

REPORT INFORMATION
  Report Type: 
  Country: None (occurrence: None)
  Receive Date: 20110127
  Receipt Date: 20110117
  Transmission Date: 20110831
  Serious: Yes (Hospitalization, Other)
  Sender: FDA-Public Use
  Company Number: AU-ELI_LILLY_AND_COMPANY-AU201101003635

PATIENT
  Sex: Male

DRUGS (1)
  1. EFFIENT [Suspect]
     Indication: STENT PLACEMENT
     Dosage: 10 MG, UNKNOWN
     Dates: start: 20101209

REACTIONS (7)
  - HEART RATE INCREASED [None]
  - RIB FRACTURE [None]
  - BLOOD PRESSURE INCREASED [None]
  - WOUND [None]
  - MALAISE [None]
  - CONTUSION [None]
  - FALL [None]
